FAERS Safety Report 6546879-9 (Version None)
Quarter: 2010Q1

REPORT INFORMATION
  Report Type: 
  Country: None (occurrence: None)
  Receive Date: 20100122
  Receipt Date: 20100113
  Transmission Date: 20100710
  Serious: Yes (Other)
  Sender: FDA-Public Use
  Company Number: CA-ASTRAZENECA-2010SE01977

PATIENT
  Sex: Male

DRUGS (1)
  1. SYMBICORT [Suspect]
     Indication: ASTHMA
     Dosage: 80/4.5 ?G, 2 INHALATIONS
     Route: 055
     Dates: start: 20091229

REACTIONS (3)
  - COUGH [None]
  - DRUG INEFFECTIVE [None]
  - WHEEZING [None]
